FAERS Safety Report 20993909 (Version 2)
Quarter: 2022Q3

REPORT INFORMATION
  Report Type: Spontaneous
  Country: US (occurrence: US)
  Receive Date: 20220622
  Receipt Date: 20220925
  Transmission Date: 20221027
  Serious: No
  Sender: FDA-Public Use
  Company Number: US-CTI BIOPHARMA-2022US02809

PATIENT

DRUGS (1)
  1. VONJO [Suspect]
     Active Substance: PACRITINIB
     Indication: Myelofibrosis
     Dosage: 200 MILLIGRAM, BID

REACTIONS (9)
  - Diarrhoea [Unknown]
  - Product dose omission issue [Unknown]
  - Malaise [Unknown]
  - Lymphadenopathy [Unknown]
  - Ear infection [Unknown]
  - Pyrexia [Unknown]
  - Abdominal discomfort [Unknown]
  - Hiccups [Unknown]
  - Nausea [Unknown]
